FAERS Safety Report 5121552-2 (Version None)
Quarter: 2006Q4

REPORT INFORMATION
  Report Type: 
  Country: None (occurrence: None)
  Receive Date: 20061006
  Receipt Date: 20060922
  Transmission Date: 20070319
  Serious: Yes (Hospitalization, Other)
  Sender: FDA-Public Use
  Company Number: PHEH2006US12109

PATIENT
  Age: 60 Year
  Sex: Female

DRUGS (11)
  1. GLEEVEC [Suspect]
     Indication: GASTROINTESTINAL STROMAL TUMOUR
     Dosage: 400 MG, QD
     Route: 048
     Dates: start: 20051201
  2. ZOMETA [Concomitant]
     Indication: METASTASES TO BONE
     Dosage: UNK, QMO
  3. LIPITOR [Concomitant]
     Dosage: 10 MG, QHS
     Route: 048
     Dates: start: 20010101
  4. TOPROL-XL [Concomitant]
     Indication: HYPERTENSION
     Dosage: 50 MG, BID
     Route: 048
  5. PREVACID [Concomitant]
     Dosage: 30 MG, BID
     Route: 048
  6. COUMADIN [Concomitant]
     Indication: PORTAL SHUNT
     Dosage: 5 MG, QD
     Route: 048
     Dates: start: 20060918
  7. COUMADIN [Concomitant]
     Dosage: 1 MG, QD
     Route: 048
  8. TRAZODONE HCL [Concomitant]
     Dosage: 150 MG, QHS
     Route: 048
  9. METOPROLOL TARTRATE [Concomitant]
     Dosage: 50 MG, BID
     Route: 048
  10. ZYRTEC [Concomitant]
     Dosage: 10 MG, QD, PRN
     Route: 048
  11. BACTRIM [Concomitant]
     Indication: INFECTION PROPHYLAXIS
     Dosage: 1 DF, QD
     Route: 048

REACTIONS (15)
  - ACUTE PULMONARY OEDEMA [None]
  - AORTIC VALVE INCOMPETENCE [None]
  - CARDIOMYOPATHY [None]
  - CHEST PAIN [None]
  - DIARRHOEA [None]
  - DYSPNOEA [None]
  - EJECTION FRACTION DECREASED [None]
  - ELECTROCARDIOGRAM ST-T CHANGE [None]
  - MITRAL VALVE INCOMPETENCE [None]
  - NAUSEA [None]
  - RALES [None]
  - TACHYPNOEA [None]
  - VENTRICULAR HYPERTROPHY [None]
  - VENTRICULAR HYPOKINESIA [None]
  - VOMITING [None]
